FAERS Safety Report 7810568-0 (Version None)
Quarter: 2011Q4

REPORT INFORMATION
  Report Type: 
  Country: None (occurrence: None)
  Receive Date: 20111013
  Receipt Date: 20111004
  Transmission Date: 20120403
  Serious: Yes (Hospitalization)
  Sender: FDA-Public Use
  Company Number: US-BIOGENIDEC-2011BI034299

PATIENT
  Age: 62 Year
  Sex: Female

DRUGS (2)
  1. AVONEX [Suspect]
     Indication: MULTIPLE SCLEROSIS
     Route: 030
     Dates: start: 20081009, end: 20091201
  2. AVONEX [Suspect]
     Route: 030
     Dates: start: 20080611, end: 20080918

REACTIONS (4)
  - NAUSEA [None]
  - TREMOR [None]
  - PANCREATITIS [None]
  - URINARY TRACT INFECTION [None]
